FAERS Safety Report 9523292 (Version 2)
Quarter: 2014Q4

REPORT INFORMATION
  Report Type: Spontaneous
  Country: US (occurrence: US)
  Receive Date: 20130913
  Receipt Date: 20141003
  Transmission Date: 20150529
  Serious: Yes (Hospitalization)
  Sender: FDA-Public Use
  Company Number: US-BAYER-2013-110936

PATIENT
  Age: 26 Year
  Sex: Female
  Weight: 70.3 kg

DRUGS (2)
  1. PREMARIN [Concomitant]
     Active Substance: ESTROGENS, CONJUGATED
  2. MIRENA [Suspect]
     Active Substance: LEVONORGESTREL
     Indication: CONTRACEPTION
     Dosage: 20 MCG/24HR, CONT
     Route: 015
     Dates: start: 20080226, end: 20091117

REACTIONS (8)
  - Device dislocation [None]
  - Device failure [None]
  - Internal injury [Not Recovered/Not Resolved]
  - Pain [None]
  - Anxiety [None]
  - Uterine perforation [None]
  - Scar [None]
  - Injury [None]

NARRATIVE: CASE EVENT DATE: 200802
